FAERS Safety Report 8862671 (Version 1)
Quarter: 2012Q4

REPORT INFORMATION
  Report Type: 
  Country: ES (occurrence: ES)
  Receive Date: 20121026
  Receipt Date: 20121026
  Transmission Date: 20130627
  Serious: Yes (Hospitalization)
  Sender: FDA-Public Use
  Company Number: ES-PFIZER INC-2012266696

PATIENT
  Age: 52 Year
  Sex: Female

DRUGS (6)
  1. TRANGOREX [Suspect]
     Indication: ATRIAL FIBRILLATION
     Dosage: UNK, Daily
     Route: 048
     Dates: end: 20120603
  2. PRADAXA [Suspect]
     Indication: CEREBROVASCULAR ACCIDENT
     Dosage: UNK, Daily
     Route: 048
     Dates: start: 20100528, end: 20120603
  3. BUSCAPINA [Concomitant]
     Dosage: UNK
     Dates: start: 20120523, end: 20120603
  4. HYDRALAZINE [Concomitant]
     Dosage: UNK
     Dates: start: 2011, end: 20120603
  5. ENALAPRIL [Concomitant]
     Dosage: UNK
     Dates: start: 2010, end: 20120603
  6. DOXAZOSIN [Concomitant]
     Dosage: UNK
     Dates: start: 2010, end: 20120603

REACTIONS (1)
  - Basal ganglia haemorrhage [Recovered/Resolved with Sequelae]
